FAERS Safety Report 12918137 (Version 1)
Quarter: 2016Q4

REPORT INFORMATION
  Report Type: Spontaneous
  Country: US (occurrence: US)
  Receive Date: 20161107
  Receipt Date: 20161107
  Transmission Date: 20170207
  Serious: No
  Sender: FDA-Public Use
  Company Number: US-ANTARES PHARMA, INC.-2016-SPO-MX-0225

PATIENT
  Age: 56 Year
  Sex: Female

DRUGS (3)
  1. OTREXUP [Suspect]
     Active Substance: METHOTREXATE
     Indication: RHEUMATOID ARTHRITIS
     Dosage: 10 MG/0.4ML, QWK
     Route: 058
     Dates: start: 201506, end: 201512
  2. OTREXUP [Suspect]
     Active Substance: METHOTREXATE
     Dosage: 15 MG/0.4ML, QWK
     Route: 058
     Dates: start: 201512
  3. ASPIRIN. [Suspect]
     Active Substance: ASPIRIN

REACTIONS (1)
  - Headache [Unknown]
